FAERS Safety Report 4918551-X (Version None)
Quarter: 2006Q1

REPORT INFORMATION
  Report Type: 
  Country: None (occurrence: None)
  Receive Date: 20060217
  Receipt Date: 20060217
  Transmission Date: 20060701
  Serious: Yes (Other)
  Sender: FDA-Public Use
  Company Number: None

PATIENT
  Sex: Female

DRUGS (4)
  1. HYDROCODONE/APAP 10-325MG [Suspect]
     Dosage: 10/325 MG 2 TAB PO STID
     Dates: start: 20040701, end: 20040915
  2. DIAZEPAM [Concomitant]
  3. DURAGESIC-100 [Concomitant]
  4. OXYCONTIN [Concomitant]

REACTIONS (2)
  - DRUG EFFECT DECREASED [None]
  - THERAPEUTIC RESPONSE UNEXPECTED WITH DRUG SUBSTITUTION [None]
